FAERS Safety Report 8579615-5 (Version None)
Quarter: 2012Q3

REPORT INFORMATION
  Report Type: 
  Country: None (occurrence: None)
  Receive Date: 20120808
  Receipt Date: 20120730
  Transmission Date: 20120928
  Serious: Yes (Other)
  Sender: FDA-Public Use
  Company Number: BR-JNJFOC-20120800193

PATIENT
  Sex: Female

DRUGS (5)
  1. AN UNKNOWN MEDICATION [Suspect]
     Indication: PRODUCT USED FOR UNKNOWN INDICATION
     Route: 065
     Dates: end: 20120721
  2. ACETAMINOPHEN W/ CODEINE [Suspect]
     Indication: PAIN IN EXTREMITY
     Route: 048
     Dates: start: 20120717, end: 20120721
  3. CELEBREX [Suspect]
     Indication: ARTHRALGIA
     Route: 065
     Dates: start: 20120717, end: 20120721
  4. ACETAMINOPHEN W/ CODEINE [Suspect]
     Indication: ARTHRALGIA
     Route: 048
     Dates: start: 20120717, end: 20120721
  5. CELEBREX [Suspect]
     Indication: PAIN IN EXTREMITY
     Route: 065
     Dates: start: 20120717, end: 20120721

REACTIONS (8)
  - VOMITING [None]
  - SWELLING [None]
  - NIGHTMARE [None]
  - SOMNOLENCE [None]
  - ARRHYTHMIA [None]
  - NAUSEA [None]
  - HALLUCINATION [None]
  - DIZZINESS [None]
